FAERS Safety Report 8185805-6 (Version None)
Quarter: 2012Q1

REPORT INFORMATION
  Report Type: 
  Country: None (occurrence: None)
  Receive Date: 20120305
  Receipt Date: 20120301
  Transmission Date: 20120608
  Serious: No
  Sender: FDA-Public Use
  Company Number: US-PFIZER INC-2012056066

PATIENT
  Sex: Female
  Weight: 136.5 kg

DRUGS (6)
  1. HYDRALAZINE [Concomitant]
     Indication: HYPERTENSION
     Dosage: UNK
  2. ZOLOFT [Suspect]
     Indication: DEPRESSION
     Dosage: 100 MG, 1X/DAY
     Route: 048
     Dates: start: 20060101, end: 20120101
  3. NORVASC [Concomitant]
     Indication: HYPERTENSION
     Dosage: UNK
  4. QUINIDINE [Concomitant]
     Indication: HYPERTENSION
     Dosage: UNK
  5. ZOLOFT [Suspect]
     Dosage: UNK
     Dates: start: 20120209
  6. BENAZEPRIL [Concomitant]
     Indication: HYPERTENSION
     Dosage: UNK

REACTIONS (1)
  - WITHDRAWAL SYNDROME [None]
